FAERS Safety Report 19133231 (Version 1)
Quarter: 2021Q2

REPORT INFORMATION
  Report Type: Spontaneous
  Country: TR (occurrence: TR)
  Receive Date: 20210413
  Receipt Date: 20210413
  Transmission Date: 20210717
  Serious: Yes (Hospitalization, Other)
  Sender: FDA-Public Use
  Company Number: TR-UNICHEM PHARMACEUTICALS (USA) INC-UCM202103-000309

PATIENT
  Age: 5 Day
  Sex: Male
  Weight: 3.25 kg

DRUGS (1)
  1. DIVALPROEX SODIUM. [Suspect]
     Active Substance: DIVALPROEX SODIUM
     Indication: FOETAL EXPOSURE DURING PREGNANCY
     Dosage: UNKNOWN

REACTIONS (3)
  - Foetal exposure during pregnancy [None]
  - Foetal anticonvulsant syndrome [Recovered/Resolved]
  - Arteriovenous fistula [Recovered/Resolved]
